FAERS Safety Report 8343763-5 (Version None)
Quarter: 2012Q2

REPORT INFORMATION
  Report Type: 
  Country: None (occurrence: None)
  Receive Date: 20120508
  Receipt Date: 20120430
  Transmission Date: 20120825
  Serious: Yes (Hospitalization)
  Sender: FDA-Public Use
  Company Number: US-BAYER-2011-076214

PATIENT
  Age: 34 Year
  Sex: Female
  Weight: 99.773 kg

DRUGS (6)
  1. IBUPROFEN [Concomitant]
     Dosage: UNK
     Dates: start: 20090501
  2. YASMIN [Suspect]
     Dosage: UNK
     Dates: start: 20040301, end: 20040701
  3. YASMIN [Suspect]
     Indication: CONTRACEPTION
     Dosage: UNK
     Dates: start: 20030301, end: 20030501
  4. DROSPIRENONE AND ETHINYL ESTRADIOL [Suspect]
     Indication: CONTRACEPTION
     Dosage: UNK
     Dates: start: 20090727, end: 20090801
  5. SINGULAIR [Concomitant]
     Indication: ASTHMA
     Dosage: 10 MG, QD
     Dates: start: 20031201, end: 20100901
  6. YASMIN [Suspect]
     Dosage: UNK
     Dates: start: 20070301, end: 20090601

REACTIONS (6)
  - PULMONARY EMBOLISM [None]
  - ANXIETY [None]
  - EMOTIONAL DISTRESS [None]
  - CHEST PAIN [None]
  - CHEST DISCOMFORT [None]
  - PAIN [None]
